FAERS Safety Report 8909108 (Version 1)
Quarter: 2012Q4

REPORT INFORMATION
  Report Type: 
  Country: US (occurrence: US)
  Receive Date: 20121114
  Receipt Date: 20121114
  Transmission Date: 20130627
  Serious: Yes (Other)
  Sender: FDA-Public Use
  Company Number: PHHY2012US104664

PATIENT
  Sex: Female

DRUGS (1)
  1. FTY 720 [Suspect]
     Dosage: UNK UKN, UNK
     Route: 048

REACTIONS (2)
  - Maculopathy [Unknown]
  - Macular oedema [Unknown]
